FAERS Safety Report 6017217-5 (Version None)
Quarter: 2008Q4

REPORT INFORMATION
  Report Type: 
  Country: None (occurrence: None)
  Receive Date: 20081223
  Receipt Date: 20081217
  Transmission Date: 20090506
  Serious: Yes (Other)
  Sender: FDA-Public Use
  Company Number: IE-ASTRAZENECA-2008GB02364

PATIENT
  Age: 57 Year
  Sex: Male

DRUGS (6)
  1. CRESTOR [Suspect]
     Indication: HYPERCHOLESTEROLAEMIA
     Dosage: CHANGED BACK TO TAKING CRESTOR AT NIGHT TIME POST THE EVENT
     Route: 048
     Dates: start: 20080814
  2. NUSEALS ASPIRIN [Concomitant]
  3. PLAVIX [Concomitant]
  4. CARDICOR [Concomitant]
  5. NEXIUM [Concomitant]
  6. FOLIC ACID [Concomitant]

REACTIONS (1)
  - HEART RATE INCREASED [None]
